FAERS Safety Report 5563194-0 (Version None)
Quarter: 2007Q4

REPORT INFORMATION
  Report Type: 
  Country: None (occurrence: None)
  Receive Date: 20071217
  Receipt Date: 20071206
  Transmission Date: 20080405
  Serious: Yes (Other)
  Sender: FDA-Public Use
  Company Number: IT-JNJFOC-20071201860

PATIENT
  Age: 59 Year
  Sex: Male

DRUGS (4)
  1. TAVANIC [Suspect]
     Indication: PNEUMONIA VIRAL
     Route: 048
  2. PREDNISOLONE [Concomitant]
     Route: 048
  3. PREDNISOLONE [Concomitant]
     Route: 048
  4. PREDNISOLONE [Concomitant]
     Indication: MYASTHENIA GRAVIS
     Route: 048

REACTIONS (1)
  - MYASTHENIA GRAVIS [None]
